FAERS Safety Report 7493449-4 (Version None)
Quarter: 2011Q2

REPORT INFORMATION
  Report Type: 
  Country: None (occurrence: None)
  Receive Date: 20110520
  Receipt Date: 20110504
  Transmission Date: 20111010
  Serious: No
  Sender: FDA-Public Use
  Company Number: US-B.I. PHARMACEUTICALS,INC./RIDGEFIELD-2011-BP-06652BP

PATIENT
  Sex: Male
  Weight: 75.75 kg

DRUGS (23)
  1. NEURONTIN [Concomitant]
     Route: 048
  2. PRILOSEC [Concomitant]
     Dosage: 80 MG
  3. ADVAIR DISKUS 100/50 [Concomitant]
     Route: 055
  4. FLOMAX [Concomitant]
     Dosage: 0.4 MG
  5. ADVAIR DISKUS 100/50 [Concomitant]
     Route: 055
  6. AGGRENOX [Suspect]
     Route: 048
  7. PROVENTIL [Concomitant]
  8. GLUCOSAMINE-CHONDROITIN-BIOFLAVONOIDS-MANGANESE [Concomitant]
  9. SYNTHROID [Concomitant]
     Dosage: 25 MCG
  10. MOBIC [Concomitant]
     Dosage: 15 MG
  11. LOVAZA [Concomitant]
     Dosage: 1000 MG
  12. TOPAMAX [Concomitant]
     Dosage: 200 MG
     Route: 048
  13. CALCIUM + D [Concomitant]
  14. COENZYME Q10 [Concomitant]
     Dosage: 30 MG
     Route: 048
  15. NEURONTIN [Concomitant]
     Dosage: 900 MG
     Route: 048
  16. VITAMIN B12 TR [Concomitant]
     Dosage: 1000 MCG
  17. FOLIC ACID [Concomitant]
     Dosage: 400 MCG
  18. ZOCOR [Concomitant]
     Dosage: 80 MG
  19. AMBIEN [Concomitant]
     Indication: SLEEP DISORDER
  20. VITAMIN B6 [Concomitant]
     Dosage: 50 MG
     Route: 048
  21. H A JOINT FORMULA [Concomitant]
     Route: 048
  22. NASAREL [Concomitant]
  23. PERFECT MULTI GREENS [Concomitant]
     Route: 048

REACTIONS (3)
  - PAIN IN EXTREMITY [None]
  - NEUROPATHY PERIPHERAL [None]
  - HYPOAESTHESIA [None]
